FAERS Safety Report 6568277-4 (Version None)
Quarter: 2010Q1

REPORT INFORMATION
  Report Type: 
  Country: None (occurrence: None)
  Receive Date: 20100128
  Receipt Date: 20100119
  Transmission Date: 20100710
  Serious: Yes (Hospitalization)
  Sender: FDA-Public Use
  Company Number: 2010US000149

PATIENT
  Age: 65 Year
  Sex: Female

DRUGS (4)
  1. VIBATIV [Suspect]
     Indication: SKIN ULCER
     Dosage: 500 MG, UID/QD, IV NOS
     Route: 042
     Dates: start: 20091211, end: 20091221
  2. ZOCOR [Concomitant]
  3. PLAVIX [Concomitant]
  4. LOPRESSOR [Concomitant]

REACTIONS (1)
  - CEREBROVASCULAR ACCIDENT [None]
